FAERS Safety Report 19975037 (Version 1)
Quarter: 2021Q4

REPORT INFORMATION
  Report Type: Spontaneous
  Country: US (occurrence: US)
  Receive Date: 20211020
  Receipt Date: 20211020
  Transmission Date: 20220304
  Serious: No
  Sender: FDA-Public Use
  Company Number: US-ALLERGAN-2050530US

PATIENT
  Age: 96 Year
  Sex: Female

DRUGS (10)
  1. LINZESS [Suspect]
     Active Substance: LINACLOTIDE
     Indication: Constipation
     Dosage: 72 ?G, QAM, BEFORE LOW FAT MEAL
     Route: 048
  2. LINZESS [Suspect]
     Active Substance: LINACLOTIDE
     Dosage: 145 ?G, QAM, BEFOREA LOW FAT MEAL
     Route: 048
     Dates: start: 20201217, end: 20201228
  3. LASIX [Concomitant]
     Active Substance: FUROSEMIDE
  4. AMILORIDE [Concomitant]
     Active Substance: AMILORIDE
     Indication: Cardiac failure
  5. AMILORIDE [Concomitant]
     Active Substance: AMILORIDE
     Indication: Atrial fibrillation
  6. LEVOTHYROXINE [Concomitant]
     Active Substance: LEVOTHYROXINE
     Indication: Thyroid disorder
  7. TRAZODONE [Concomitant]
     Active Substance: TRAZODONE HYDROCHLORIDE
     Indication: Anxiety
  8. TRAZODONE [Concomitant]
     Active Substance: TRAZODONE HYDROCHLORIDE
     Indication: Insomnia
  9. VITAMINS NOS [Concomitant]
     Active Substance: VITAMINS
  10. ELIQUIS [Concomitant]
     Active Substance: APIXABAN

REACTIONS (3)
  - Abnormal faeces [Recovering/Resolving]
  - Diarrhoea [Recovering/Resolving]
  - Anal incontinence [Not Recovered/Not Resolved]
